FAERS Safety Report 5287616-8 (Version None)
Quarter: 2007Q1

REPORT INFORMATION
  Report Type: 
  Country: None (occurrence: None)
  Receive Date: 20070124
  Receipt Date: 20060119
  Transmission Date: 20070707
  Serious: Yes (Other)
  Sender: FDA-Public Use
  Company Number: WAES 0601USA02289

PATIENT

DRUGS (1)
  1. INVANZ [Suspect]
     Indication: INFECTION
     Dosage: 1.0 GM/DAILY/IV
     Route: 042
     Dates: end: 20060101

REACTIONS (2)
  - BLOOD ALBUMIN DECREASED [None]
  - CONVULSION [None]
